FAERS Safety Report 7982299-8 (Version None)
Quarter: 2011Q4

REPORT INFORMATION
  Report Type: 
  Country: None (occurrence: None)
  Receive Date: 20111215
  Receipt Date: 20111201
  Transmission Date: 20120403
  Serious: Yes (Other)
  Sender: FDA-Public Use
  Company Number: PHFR2011GB006944

PATIENT
  Sex: Female

DRUGS (3)
  1. STELARA [Suspect]
     Indication: PSORIASIS
     Dosage: 45 MG, UNK
     Route: 058
     Dates: start: 20110701
  2. STELARA [Suspect]
     Dosage: 45 MG ONCE EVERY 8 WEEKS
     Route: 058
     Dates: start: 20110701
  3. CYCLOSPORINE [Suspect]
     Dosage: 100 MG, BID

REACTIONS (4)
  - PSORIASIS [None]
  - THERAPEUTIC RESPONSE DECREASED [None]
  - BLOOD PRESSURE INCREASED [None]
  - RENAL DISORDER [None]
